FAERS Safety Report 18035794 (Version 1)
Quarter: 2020Q3

REPORT INFORMATION
  Report Type: Spontaneous
  Country: US (occurrence: US)
  Receive Date: 20200716
  Receipt Date: 20200716
  Transmission Date: 20201103
  Serious: Yes (Hospitalization)
  Sender: FDA-Public Use
  Company Number: None

PATIENT
  Age: 67 Year
  Sex: Female
  Weight: 79.38 kg

DRUGS (8)
  1. ATORVASTATIN [Concomitant]
     Active Substance: ATORVASTATIN
  2. LAMICTAL [Concomitant]
     Active Substance: LAMOTRIGINE
  3. VITAMIN D [Concomitant]
     Active Substance: VITAMIN D NOS
  4. PREDNISONE. [Suspect]
     Active Substance: PREDNISONE
     Indication: HIP FRACTURE
     Dosage: ?          QUANTITY:4 DF DOSAGE FORM;?
     Route: 048
     Dates: start: 20200507, end: 20200509
  5. LITHIUM. [Concomitant]
     Active Substance: LITHIUM
  6. OMEPERZOLE [Concomitant]
  7. ABILIFY [Concomitant]
     Active Substance: ARIPIPRAZOLE
  8. CALCIUM [Concomitant]
     Active Substance: CALCIUM

REACTIONS (1)
  - Hallucination, visual [None]

NARRATIVE: CASE EVENT DATE: 20200507
